FAERS Safety Report 17098749 (Version 6)
Quarter: 2020Q2

REPORT INFORMATION
  Report Type: Report from Study
  Country: US (occurrence: US)
  Receive Date: 20191202
  Receipt Date: 20200610
  Transmission Date: 20200713
  Serious: Yes (Hospitalization, Other)
  Sender: FDA-Public Use
  Company Number: NVSC2019US051259

PATIENT
  Sex: Female

DRUGS (5)
  1. PIQRAY [Suspect]
     Active Substance: ALPELISIB
     Dosage: 250 MG
     Route: 065
  2. PIQRAY [Suspect]
     Active Substance: ALPELISIB
     Indication: PRODUCT USED FOR UNKNOWN INDICATION
     Dosage: 250 MG, QD
     Route: 048
  3. PIQRAY [Suspect]
     Active Substance: ALPELISIB
     Dosage: 800 MG
     Route: 065
  4. PIQRAY [Suspect]
     Active Substance: ALPELISIB
     Dosage: 250 MG, UNK
     Route: 065
  5. PIQRAY [Suspect]
     Active Substance: ALPELISIB
     Dosage: 200 MG, UNK
     Route: 065

REACTIONS (5)
  - Diabetes mellitus [Unknown]
  - Diarrhoea [Unknown]
  - Neoplasm malignant [Unknown]
  - Blood glucose increased [Not Recovered/Not Resolved]
  - Asthenia [Unknown]
